FAERS Safety Report 5953145-9 (Version None)
Quarter: 2008Q4

REPORT INFORMATION
  Report Type: 
  Country: None (occurrence: None)
  Receive Date: 20081114
  Receipt Date: 20081103
  Transmission Date: 20090506
  Serious: Yes (Other)
  Sender: FDA-Public Use
  Company Number: US-JNJCH-2008054519

PATIENT
  Age: 3 Year
  Sex: Female

DRUGS (4)
  1. GUAIPHENESIN/DEXTROMETHORPHAN [Suspect]
     Indication: NASOPHARYNGITIS
     Dosage: TEXT:UNKNOWN
     Route: 065
  2. GUAIPHENESIN/DEXTROMETHORPHAN [Suspect]
     Indication: OCULAR HYPERAEMIA
  3. GUAIPHENESIN/DEXTROMETHORPHAN [Suspect]
     Indication: SWELLING
  4. IBUPROFEN TABLETS [Suspect]
     Indication: DRUG USE FOR UNKNOWN INDICATION
     Dosage: TEXT:UNKNOWN
     Route: 065

REACTIONS (2)
  - BRONCHIAL HYPERREACTIVITY [None]
  - HYPERSENSITIVITY [None]
